FAERS Safety Report 14597643 (Version 1)
Quarter: 2018Q1

REPORT INFORMATION
  Report Type: Spontaneous
  Country: US (occurrence: US)
  Receive Date: 20180305
  Receipt Date: 20180305
  Transmission Date: 20180509
  Serious: Yes (Hospitalization)
  Sender: FDA-Public Use
  Company Number: US-STRIDES ARCOLAB LIMITED-2018SP000618

PATIENT

DRUGS (1)
  1. METRONIDAZOLE. [Suspect]
     Active Substance: METRONIDAZOLE
     Indication: PRODUCT USED FOR UNKNOWN INDICATION
     Dosage: 500 MG, BID
     Route: 065

REACTIONS (6)
  - Confusional state [Recovered/Resolved]
  - Dyspnoea [Recovered/Resolved]
  - Dysmetria [Recovered/Resolved]
  - Dysarthria [Recovered/Resolved]
  - Cerebellar ataxia [Recovered/Resolved]
  - Neurotoxicity [Recovered/Resolved]
